FAERS Safety Report 21907757 (Version 1)
Quarter: 2023Q1

REPORT INFORMATION
  Report Type: Spontaneous
  Country: CA (occurrence: CA)
  Receive Date: 20230125
  Receipt Date: 20230125
  Transmission Date: 20230417
  Serious: Yes (Hospitalization)
  Sender: FDA-Public Use
  Company Number: None

PATIENT
  Age: 76 Year
  Sex: Male
  Weight: 94 kg

DRUGS (24)
  1. CARBOPLATIN [Suspect]
     Active Substance: CARBOPLATIN
     Indication: Non-Hodgkin^s lymphoma recurrent
     Dosage: SOLUTION INTRAVENOUS, CYCLICAL
  2. ETOPOSIDE [Suspect]
     Active Substance: ETOPOSIDE
     Indication: Non-Hodgkin^s lymphoma recurrent
     Dosage: CYCLICAL
  3. IFOSFAMIDE [Suspect]
     Active Substance: IFOSFAMIDE
     Indication: Non-Hodgkin^s lymphoma recurrent
     Dosage: POWDER FOR SOLUTION INTRAVENOUS, CYCLICAL, INJECTION, USP
  4. MESNA [Suspect]
     Active Substance: MESNA
     Indication: Non-Hodgkin^s lymphoma recurrent
     Dosage: CYCLICAL
  5. RITUXIMAB [Suspect]
     Active Substance: RITUXIMAB
     Indication: Non-Hodgkin^s lymphoma recurrent
     Dosage: CYCLICAL
  6. ACETAMINOPHEN [Concomitant]
     Active Substance: ACETAMINOPHEN
  7. ALLOPURINOL [Concomitant]
     Active Substance: ALLOPURINOL
  8. AMLODIPINE [Concomitant]
     Active Substance: AMLODIPINE BESYLATE
     Route: 065
  9. ATORVASTATIN [Concomitant]
     Active Substance: ATORVASTATIN
     Route: 065
  10. DEXAMETHASONE [Concomitant]
     Active Substance: DEXAMETHASONE
     Route: 065
  11. DEXLANSOPRAZOLE [Concomitant]
     Active Substance: DEXLANSOPRAZOLE
     Dosage: DELAYED RELEASE
  12. DIPHENHYDRAMINE [Concomitant]
     Active Substance: DIPHENHYDRAMINE
  13. ELIQUIS [Concomitant]
     Active Substance: APIXABAN
  14. ENTECAVIR [Concomitant]
     Active Substance: ENTECAVIR
  15. FILGRASTIM [Concomitant]
     Active Substance: FILGRASTIM
  16. FUROSEMIDE [Concomitant]
     Active Substance: FUROSEMIDE
  17. GLICLAZIDE [Concomitant]
     Active Substance: GLICLAZIDE
  18. GRANISETRON [Concomitant]
     Active Substance: GRANISETRON
  19. Linagliptin, Metformin [Concomitant]
  20. LORAZEPAM [Concomitant]
     Active Substance: LORAZEPAM
     Route: 065
  21. PROCHLORPERAZINE [Concomitant]
     Active Substance: PROCHLORPERAZINE
  22. TAMSULOSIN [Concomitant]
     Active Substance: TAMSULOSIN
  23. TEMAZEPAM [Concomitant]
     Active Substance: TEMAZEPAM
  24. VALACYCLOVIR HYDROCHLORIDE [Concomitant]
     Active Substance: VALACYCLOVIR HYDROCHLORIDE

REACTIONS (3)
  - Bacteraemia [Recovered/Resolved]
  - Colitis [Recovered/Resolved]
  - Febrile neutropenia [Recovered/Resolved]
